FAERS Safety Report 4835936-0 (Version None)
Quarter: 2005Q4

REPORT INFORMATION
  Report Type: 
  Country: None (occurrence: None)
  Receive Date: 20051118
  Receipt Date: 20051107
  Transmission Date: 20060501
  Serious: Yes (Hospitalization)
  Sender: FDA-Public Use
  Company Number: B0400049A

PATIENT
  Sex: Female

DRUGS (2)
  1. PAROXETINE HCL [Suspect]
     Dosage: TRANSPLACENTARY
     Route: 064
  2. CHLORPROMAZINE HCL [Suspect]
     Dosage: 50 MG/TWICE PER DAY/TRANSPLACEN
     Route: 064

REACTIONS (7)
  - CONVULSION NEONATAL [None]
  - DRUG EXPOSURE DURING PREGNANCY [None]
  - NEONATAL DISORDER [None]
  - NEONATAL RESPIRATORY DISTRESS SYNDROME [None]
  - POLYCYTHAEMIA [None]
  - PYREXIA [None]
  - SEROTONIN SYNDROME [None]
